FAERS Safety Report 25613211 (Version 2)
Quarter: 2025Q3

REPORT INFORMATION
  Report Type: Spontaneous
  Country: EU (occurrence: EU)
  Receive Date: 20250728
  Receipt Date: 20250806
  Transmission Date: 20251021
  Serious: Yes (Death, Other)
  Sender: FRESENIUS KABI
  Company Number: None

PATIENT
  Age: 34 Year
  Sex: Male
  Weight: 65 kg

DRUGS (27)
  1. PROPOFOL [Suspect]
     Active Substance: PROPOFOL
     Indication: Sedation
     Route: 042
     Dates: start: 20250705, end: 20250709
  2. PROPOFOL [Suspect]
     Active Substance: PROPOFOL
     Indication: Fall
  3. PROPOFOL [Suspect]
     Active Substance: PROPOFOL
     Indication: Psychotic disorder
  4. METOCLOPRAMIDE solution for injection 5MG/ML (HCL) / Brand name not sp [Concomitant]
     Indication: Gastric emptying study
  5. ERYTHROMYCIN solution for injection INTRACUTANE TEST / Brand name not [Concomitant]
     Indication: Gastric emptying study
  6. SUFENTANIL Solution for injection 5UG/ML / Brand name not specified [Concomitant]
     Indication: Product used for unknown indication
  7. MIDAZOLAM Solution for injection 5MG/ML / Brand name not specified [Concomitant]
     Indication: Product used for unknown indication
  8. ROCURONIUM [Concomitant]
     Active Substance: ROCURONIUM BROMIDE
     Indication: Product used for unknown indication
  9. NORADRENALINE Solution for infusion 0,05MG/ML / Brand name not specifi [Concomitant]
     Indication: Product used for unknown indication
  10. TERLIPRESSIN  IN 0,1MG/ML (diacetate) / Brand name not specified [Concomitant]
     Indication: Product used for unknown indication
  11. ADRENALINE Solution for injection 0,01MG/ML / Brand name not specified [Concomitant]
     Indication: Product used for unknown indication
  12. CEFUROXIM Solution for injection 75MG/ML / Brand name not specified [Concomitant]
     Indication: Product used for unknown indication
  13. GENTAMICINE Solution for injection 10MG/ML / Brand name not specified [Concomitant]
     Indication: Product used for unknown indication
  14. HYDROCORTISON-BUTYRATE cutaneous solution 1MG/ML / Brand name not spec [Concomitant]
     Indication: Product used for unknown indication
     Route: 003
  15. PARACETAMOL TABLET  500MG / Brand name not specified [Concomitant]
     Indication: Product used for unknown indication
     Route: 048
  16. ARGIPRESSIN [Concomitant]
     Active Substance: ARGIPRESSIN
     Indication: Product used for unknown indication
  17. POTASSIUM CHLORIDE [Concomitant]
     Active Substance: POTASSIUM CHLORIDE
     Indication: Product used for unknown indication
  18. CALCIUM GLUCONATE [Concomitant]
     Active Substance: CALCIUM GLUCONATE
     Indication: Product used for unknown indication
  19. PHENYLEPHRINE [Concomitant]
     Active Substance: PHENYLEPHRINE
     Indication: Product used for unknown indication
  20. MANNITOL [Concomitant]
     Active Substance: MANNITOL
     Indication: Product used for unknown indication
  21. NADROPARIN [Concomitant]
     Active Substance: NADROPARIN
     Indication: Product used for unknown indication
  22. MAGNESIUM SULFATE [Concomitant]
     Active Substance: MAGNESIUM SULFATE
     Indication: Product used for unknown indication
  23. SSD (silver sulfadiazine) [Concomitant]
     Indication: Product used for unknown indication
  24. POLYETHYLENE GLYCOLS [Concomitant]
     Active Substance: POLYETHYLENE GLYCOLS
     Indication: Product used for unknown indication
  25. VITAMIN B [Concomitant]
     Active Substance: VITAMIN B
     Indication: Product used for unknown indication
  26. VITAMIN C [Concomitant]
     Active Substance: ASCORBIC ACID
     Indication: Product used for unknown indication
  27. VITAMIN D [Concomitant]
     Active Substance: VITAMIN D NOS
     Indication: Product used for unknown indication

REACTIONS (1)
  - Propofol infusion syndrome [Fatal]

NARRATIVE: CASE EVENT DATE: 20250709
